FAERS Safety Report 5503265-8 (Version None)
Quarter: 2007Q4

REPORT INFORMATION
  Report Type: 
  Country: None (occurrence: None)
  Receive Date: 20071031
  Receipt Date: 20071030
  Transmission Date: 20080405
  Serious: Yes (Hospitalization, Other)
  Sender: FDA-Public Use
  Company Number: US-RB-008415-07

PATIENT
  Sex: Male

DRUGS (8)
  1. SUBOXONE [Suspect]
     Route: 060
     Dates: start: 20070921
  2. VALIUM [Suspect]
     Indication: DRUG USE FOR UNKNOWN INDICATION
     Dosage: DOSAGE UNKNOWN
     Route: 065
  3. SIMVASTATIN [Concomitant]
     Dosage: DOSAGE UNKNOWN
     Route: 048
     Dates: start: 20071003
  4. RISPERDAL [Concomitant]
     Route: 048
     Dates: start: 20071015
  5. CHANTIX [Suspect]
     Indication: SMOKING CESSATION THERAPY
     Dosage: DOSAGE UNKNOWN
     Route: 048
     Dates: start: 20071003, end: 20071015
  6. INDERAL [Suspect]
     Indication: HEADACHE
     Route: 048
     Dates: start: 20071003, end: 20071015
  7. EFFEXOR XR [Suspect]
     Indication: DEPRESSION
     Route: 048
     Dates: start: 20071003, end: 20071015
  8. EFFEXOR XR [Suspect]
     Indication: ANXIETY
     Route: 048
     Dates: start: 20071003, end: 20071015

REACTIONS (6)
  - ANXIETY [None]
  - DEPRESSION [None]
  - HALLUCINATION [None]
  - HYPOTENSION [None]
  - TACHYCARDIA [None]
  - WEIGHT DECREASED [None]
